FAERS Safety Report 4673101-0 (Version None)
Quarter: 2005Q2

REPORT INFORMATION
  Report Type: 
  Country: None (occurrence: None)
  Receive Date: 20050524
  Receipt Date: 20050524
  Transmission Date: 20051028
  Serious: Yes (Other)
  Sender: FDA-Public Use
  Company Number: None

PATIENT
  Age: 26 Year
  Sex: Female
  Weight: 79.3795 kg

DRUGS (2)
  1. SINUBID [Suspect]
     Indication: SINUSITIS
     Dosage: DAILY ORAL
     Route: 048
     Dates: start: 19860701, end: 19860901
  2. BIRTH CONTROL PILLS [Concomitant]

REACTIONS (3)
  - ANGIOPATHY [None]
  - ERYTHEMA [None]
  - FLUSHING [None]
